FAERS Safety Report 13489685 (Version 1)
Quarter: 2017Q2

REPORT INFORMATION
  Report Type: Spontaneous
  Country: US (occurrence: US)
  Receive Date: 20170427
  Receipt Date: 20170427
  Transmission Date: 20170830
  Serious: Yes (Hospitalization)
  Sender: FDA-Public Use
  Company Number: None

PATIENT
  Age: 64 Year
  Sex: Male
  Weight: 102 kg

DRUGS (2)
  1. PIPERACILLIN/TAZOBACTAM [Suspect]
     Active Substance: PIPERACILLIN SODIUM\TAZOBACTAM SODIUM
     Indication: INFECTION
     Route: 042
     Dates: start: 20170117, end: 20170123
  2. VANCOMYCIN [Suspect]
     Active Substance: VANCOMYCIN
     Route: 048
     Dates: start: 20170122, end: 20170125

REACTIONS (1)
  - Acute generalised exanthematous pustulosis [None]

NARRATIVE: CASE EVENT DATE: 20170202
